FAERS Safety Report 4423684-0 (Version None)
Quarter: 2004Q3

REPORT INFORMATION
  Report Type: 
  Country: None (occurrence: None)
  Receive Date: 20040805
  Receipt Date: 20040723
  Transmission Date: 20050211
  Serious: Yes (Disabling)
  Sender: FDA-Public Use
  Company Number: 2004018637

PATIENT
  Age: 74 Year
  Sex: Female

DRUGS (4)
  1. NEURONTIN [Suspect]
     Indication: POLYNEUROPATHY
     Dosage: 2700 MG (300 MG, 9 IN 1 D) ORAL
     Route: 048
     Dates: start: 20030801, end: 20030101
  2. THIOCTIC ACID (THIOCTIC ACID) [Concomitant]
  3. FUROSEMIDE [Concomitant]
  4. ALL OTHER THERAPEUTIC PRODUCTS [Concomitant]

REACTIONS (3)
  - CONDITION AGGRAVATED [None]
  - DIFFICULTY IN WALKING [None]
  - POLYNEUROPATHY [None]
